FAERS Safety Report 22204723 (Version 1)
Quarter: 2023Q2

REPORT INFORMATION
  Report Type: Spontaneous
  Country: AU (occurrence: AU)
  Receive Date: 20230413
  Receipt Date: 20230413
  Transmission Date: 20230722
  Serious: Yes (Other)
  Sender: FDA-Public Use
  Company Number: AU-ALKEM LABORATORIES LIMITED-AU-ALKEM-2023-03808

PATIENT
  Age: 54 Year
  Sex: Male

DRUGS (2)
  1. IBUPROFEN [Suspect]
     Active Substance: IBUPROFEN
     Indication: Product used for unknown indication
     Dosage: UNK
     Route: 065
  2. ACETAMINOPHEN [Suspect]
     Active Substance: ACETAMINOPHEN
     Indication: Product used for unknown indication
     Dosage: UNK
     Route: 065

REACTIONS (11)
  - Acute kidney injury [Unknown]
  - Hypokalaemia [Unknown]
  - Renal tubular acidosis [Unknown]
  - Syncope [Unknown]
  - Cough [Unknown]
  - Dyspnoea [Unknown]
  - Lethargy [Unknown]
  - Metabolic acidosis [Unknown]
  - Pyrexia [Unknown]
  - Pyroglutamic acidosis [Unknown]
  - Vomiting [Unknown]
